FAERS Safety Report 21633905 (Version 2)
Quarter: 2023Q1

REPORT INFORMATION
  Report Type: Report from Study
  Country: CA (occurrence: CA)
  Receive Date: 20221123
  Receipt Date: 20230216
  Transmission Date: 20230417
  Serious: Yes (Death)
  Sender: FDA-Public Use
  Company Number: CA-PFIZER INC-202201309618

PATIENT
  Sex: Male

DRUGS (2)
  1. BEVACIZUMAB [Suspect]
     Active Substance: BEVACIZUMAB
     Indication: Hepatocellular carcinoma
     Dosage: UNK
     Route: 065
     Dates: start: 2021, end: 2021
  2. TECENTRIQ [Suspect]
     Active Substance: ATEZOLIZUMAB
     Indication: Hepatocellular carcinoma
     Dosage: 1200 MG, EVERY 3 WEEKS (300 MG AT DAY 0 AND 14, THEN 600 MG EVERY 6 MONTH)
     Route: 042
     Dates: start: 2021, end: 2021

REACTIONS (3)
  - Death [Fatal]
  - Blood test abnormal [Not Recovered/Not Resolved]
  - Scan abnormal [Not Recovered/Not Resolved]
